FAERS Safety Report 5865196-3 (Version None)
Quarter: 2008Q3

REPORT INFORMATION
  Report Type: 
  Country: None (occurrence: None)
  Receive Date: 20080829
  Receipt Date: 20080822
  Transmission Date: 20090109
  Serious: Yes (Congenital Anomaly)
  Sender: FDA-Public Use
  Company Number: B0516711A

PATIENT

DRUGS (3)
  1. COMBIVIR [Suspect]
     Indication: HIV INFECTION
     Dates: start: 20070601
  2. KALETRA [Suspect]
     Indication: HIV INFECTION
     Dates: start: 20070601
  3. FERROFUMARAAT [Concomitant]
     Dosage: 200MG PER DAY
     Dates: start: 20071206

REACTIONS (2)
  - CONGENITAL DIAPHRAGMATIC HERNIA [None]
  - DRUG EXPOSURE DURING PREGNANCY [None]
